FAERS Safety Report 10235637 (Version 2)
Quarter: 2014Q2

REPORT INFORMATION
  Report Type: Report from Study
  Country: BR (occurrence: BR)
  Receive Date: 20140613
  Receipt Date: 20140618
  Transmission Date: 20141212
  Serious: Yes (Hospitalization)
  Sender: FDA-Public Use
  Company Number: BR-SHIRE-BR201402826

PATIENT
  Age: 13 Year
  Sex: Male

DRUGS (4)
  1. IDURSULFASE [Suspect]
     Indication: MUCOPOLYSACCHARIDOSIS II
     Dosage: 0.5 MG/KG, 1X/WEEK
     Route: 041
     Dates: start: 20090902
  2. IDURSULFASE [Suspect]
     Dosage: UNK, UNKNOWN
     Route: 041
     Dates: start: 20040128
  3. IDURSULFASE [Suspect]
     Dosage: 0.5 MG/KG, 1X/WEEK
     Route: 041
     Dates: start: 20070131
  4. IDURSULFASE [Suspect]
     Dosage: 0.5 MG/KG, 1X/WEEK
     Route: 041
     Dates: start: 20120109

REACTIONS (1)
  - Respiratory tract infection [Recovered/Resolved]
